FAERS Safety Report 6099859-4 (Version None)
Quarter: 2009Q1

REPORT INFORMATION
  Report Type: 
  Country: None (occurrence: None)
  Receive Date: 20090303
  Receipt Date: 20090227
  Transmission Date: 20090719
  Serious: Yes (Life-Threatening, Other)
  Sender: FDA-Public Use
  Company Number: PHHY2008GB31198

PATIENT
  Sex: Female

DRUGS (2)
  1. TEGRETOL [Suspect]
     Indication: BIPOLAR DISORDER
     Dosage: UNK
     Dates: start: 20060601, end: 20081101
  2. FRUSEMIDE [Concomitant]
     Dosage: 40 MG
     Route: 048

REACTIONS (7)
  - CARDIAC FAILURE [None]
  - CEREBROVASCULAR ACCIDENT [None]
  - FIBROMYALGIA [None]
  - HEART VALVE INCOMPETENCE [None]
  - LIVER DISORDER [None]
  - LYMPHOEDEMA [None]
  - OEDEMA PERIPHERAL [None]
